FAERS Safety Report 16742593 (Version 4)
Quarter: 2020Q3

REPORT INFORMATION
  Report Type: Report from Study
  Country: FR (occurrence: FR)
  Receive Date: 20190826
  Receipt Date: 20200930
  Transmission Date: 20201102
  Serious: Yes (Other)
  Sender: FDA-Public Use
  Company Number: FR-SHIRE-FR201847740

PATIENT

DRUGS (12)
  1. TEDUGLUTIDE [Suspect]
     Active Substance: TEDUGLUTIDE
     Indication: SHORT-BOWEL SYNDROME
     Dosage: 3.3 MILLIGRAM (DAILY DOSE OF 0.05 MG KG, 7 DOSES PER WEEK), 1X/DAY:QD
     Route: 065
     Dates: start: 20160324, end: 20181205
  2. SODIUM BICARBONATE. [Concomitant]
     Active Substance: SODIUM BICARBONATE
     Indication: SUPPLEMENTATION THERAPY
  3. TEDUGLUTIDE [Suspect]
     Active Substance: TEDUGLUTIDE
     Indication: SHORT-BOWEL SYNDROME
     Dosage: 3.3 MILLIGRAM (DAILY DOSE OF 0.05 MG KG, 7 DOSES PER WEEK), 1X/DAY:QD
     Route: 065
     Dates: start: 20160324, end: 20181205
  4. COPPER [Concomitant]
     Active Substance: COPPER
     Indication: SUPPLEMENTATION THERAPY
  5. INNOHEP [Concomitant]
     Active Substance: TINZAPARIN SODIUM
     Indication: THROMBOSIS
  6. RUBOZINC [Concomitant]
     Active Substance: ZINC GLUCONATE
     Indication: SUPPLEMENTATION THERAPY
  7. EUPANTOL [Concomitant]
     Active Substance: PANTOPRAZOLE SODIUM
     Indication: ABDOMINAL PAIN
  8. TIAPRIDAL [Concomitant]
     Active Substance: TIAPRIDE HYDROCHLORIDE
     Indication: ANXIETY
  9. CHOLURSO [Concomitant]
     Active Substance: URSODIOL
     Indication: LIVER DISORDER
  10. TEDUGLUTIDE [Suspect]
     Active Substance: TEDUGLUTIDE
     Indication: SHORT-BOWEL SYNDROME
     Dosage: 3.3 MILLIGRAM (DAILY DOSE OF 0.05 MG KG, 7 DOSES PER WEEK), 1X/DAY:QD
     Route: 065
     Dates: start: 20160324, end: 20181205
  11. TEDUGLUTIDE [Suspect]
     Active Substance: TEDUGLUTIDE
     Indication: SHORT-BOWEL SYNDROME
     Dosage: 3.3 MILLIGRAM (DAILY DOSE OF 0.05 MG KG, 7 DOSES PER WEEK), 1X/DAY:QD
     Route: 065
     Dates: start: 20160324, end: 20181205
  12. SELENIUM [Concomitant]
     Active Substance: SELENIUM
     Indication: SUPPLEMENTATION THERAPY

REACTIONS (6)
  - Hypokalaemia [Not Recovered/Not Resolved]
  - Liver disorder [Not Recovered/Not Resolved]
  - Dehydration [Recovered/Resolved]
  - Cardiac failure [Not Recovered/Not Resolved]
  - Abdominal pain [Recovered/Resolved]
  - Hepatic encephalopathy [Not Recovered/Not Resolved]

NARRATIVE: CASE EVENT DATE: 20181203
